FAERS Safety Report 5489082-6 (Version None)
Quarter: 2007Q4

REPORT INFORMATION
  Report Type: 
  Country: None (occurrence: None)
  Receive Date: 20071005
  Receipt Date: 20070618
  Transmission Date: 20080405
  Serious: No
  Sender: FDA-Public Use
  Company Number: PHEH2007US08962

PATIENT
  Age: 68 Year
  Sex: Female

DRUGS (2)
  1. TEKTURNA [Suspect]
     Indication: HYPERTENSION
     Dosage: 150 MG, QD, ORAL; 75 MG, QD, ORAL
     Route: 048
     Dates: end: 20070617
  2. TEKTURNA [Suspect]
     Indication: HYPERTENSION
     Dosage: 150 MG, QD, ORAL; 75 MG, QD, ORAL
     Route: 048
     Dates: start: 20070614

REACTIONS (3)
  - FATIGUE [None]
  - HEADACHE [None]
  - PALPITATIONS [None]
